FAERS Safety Report 7364430-0 (Version None)
Quarter: 2011Q1

REPORT INFORMATION
  Report Type: 
  Country: None (occurrence: None)
  Receive Date: 20110321
  Receipt Date: 20110316
  Transmission Date: 20110831
  Serious: Yes (Hospitalization)
  Sender: FDA-Public Use
  Company Number: JP-PFIZER INC-2011019071

PATIENT
  Age: 54 Year
  Sex: Male
  Weight: 57 kg

DRUGS (10)
  1. DIOVAN [Concomitant]
     Dosage: 40 MG, 1X/DAY
     Route: 048
  2. THYRADIN S [Concomitant]
     Dosage: 50 UG, 1X/DAY
     Route: 048
     Dates: start: 20100107
  3. PASTARON [Concomitant]
     Dosage: UNK
     Route: 062
     Dates: start: 20100318
  4. MYSLEE [Concomitant]
     Dosage: 10 MG, 1X/DAY
     Route: 048
     Dates: start: 20091112
  5. SUNITINIB MALATE [Suspect]
     Indication: RENAL CELL CARCINOMA
     Dosage: 37.5 MG, 1X/DAY
     Route: 048
     Dates: start: 20091001, end: 20110113
  6. MYSLEE [Concomitant]
     Dosage: 7.5 MG, 1X/DAY
     Route: 048
  7. CALBLOCK [Concomitant]
     Dosage: 16 MG, 1X/DAY
     Route: 048
  8. TAKEPRON [Concomitant]
     Dosage: 30 MG, 1X/DAY
     Route: 048
     Dates: start: 20100611
  9. METHYCOBAL [Concomitant]
     Dosage: 500 UG, 3X/DAY
     Route: 048
     Dates: start: 20100403
  10. ARTIST [Concomitant]
     Dosage: 10 MG, 1X/DAY
     Route: 048
     Dates: start: 20091019

REACTIONS (1)
  - INTERSTITIAL LUNG DISEASE [None]
